FAERS Safety Report 9163486 (Version 1)
Quarter: 2013Q1

REPORT INFORMATION
  Report Type: Spontaneous
  Country: FR (occurrence: FR)
  Receive Date: 20130314
  Receipt Date: 20130314
  Transmission Date: 20140127
  Serious: Yes (Other)
  Sender: FDA-Public Use
  Company Number: FR-TEVA-390082ISR

PATIENT
  Sex: Male

DRUGS (10)
  1. AZILECT [Suspect]
     Indication: PARKINSON^S DISEASE
     Dosage: 1 DOSAGE FORMS DAILY;
     Route: 048
     Dates: start: 20111216
  2. SIFROL [Suspect]
     Indication: PARKINSON^S DISEASE
     Dates: start: 201204, end: 201206
  3. NEUPRO [Suspect]
     Indication: PARKINSON^S DISEASE
     Dates: start: 201206, end: 201210
  4. TRIVASTAL [Suspect]
     Indication: PARKINSON^S DISEASE
     Dates: start: 201210, end: 201302
  5. CRESTOR [Concomitant]
  6. PLAVIX [Concomitant]
  7. COZAAR [Concomitant]
  8. OMEXEL [Concomitant]
  9. EZETROL [Concomitant]
  10. TADENAN [Concomitant]

REACTIONS (3)
  - Oedema peripheral [Not Recovered/Not Resolved]
  - Generalised oedema [Not Recovered/Not Resolved]
  - Pericarditis [Not Recovered/Not Resolved]
